FAERS Safety Report 5087175-9 (Version None)
Quarter: 2006Q3

REPORT INFORMATION
  Report Type: 
  Country: None (occurrence: None)
  Receive Date: 20060821
  Receipt Date: 20060810
  Transmission Date: 20061208
  Serious: Yes (Other)
  Sender: FDA-Public Use
  Company Number: 2006090792

PATIENT
  Age: 33 Year
  Sex: Female

DRUGS (3)
  1. ALPRAZOLAM [Suspect]
     Indication: SUICIDE ATTEMPT
     Dosage: 3.2 MG (0.4 MG,DAILY), ORAL
     Route: 048
     Dates: start: 20060720, end: 20060720
  2. ZOLPIDEM TARTRATE [Suspect]
     Indication: SUICIDE ATTEMPT
     Dosage: 30 TABLETS (DAILY), ORAL
     Route: 048
     Dates: start: 20060720, end: 20060720
  3. LENDORM [Suspect]
     Indication: SUICIDE ATTEMPT
     Dosage: 5 TABLETS (DAILY), ORAL
     Route: 048
     Dates: start: 20060720, end: 20060720

REACTIONS (3)
  - DEPRESSED LEVEL OF CONSCIOUSNESS [None]
  - MULTIPLE DRUG OVERDOSE INTENTIONAL [None]
  - SUICIDE ATTEMPT [None]
